FAERS Safety Report 8793406 (Version 2)
Quarter: 2013Q1

REPORT INFORMATION
  Report Type: Report from Study
  Country: DE (occurrence: DE)
  Receive Date: 20120918
  Receipt Date: 20130118
  Transmission Date: 20140127
  Serious: Yes (Hospitalization, Other)
  Sender: FDA-Public Use
  Company Number: DE-ASTELLAS-2012EU006594

PATIENT
  Age: 72 Year
  Sex: Male
  Weight: 72 kg

DRUGS (5)
  1. ENZALUTAMIDE [Suspect]
     Indication: PROSTATE CANCER
     Dosage: 40 MG, OTHER
     Route: 048
     Dates: start: 20120810
  2. ENZALUTAMIDE [Suspect]
     Dosage: 2 DF, UID/QD
     Route: 065
     Dates: start: 20120824, end: 20120827
  3. ENZALUTAMIDE [Suspect]
     Dosage: 1 DF, UID/QD
     Route: 065
     Dates: start: 20120904, end: 20120906
  4. ENZALUTAMIDE [Suspect]
     Dosage: 1 DF, BID
     Route: 065
     Dates: start: 20120907
  5. LEXOTANIL [Concomitant]
     Indication: SLEEP DISORDER
     Dosage: UNK
     Route: 048

REACTIONS (2)
  - Depression [Recovering/Resolving]
  - Sleep disorder [Recovering/Resolving]
